FAERS Safety Report 19933169 (Version 2)
Quarter: 2021Q4

REPORT INFORMATION
  Report Type: Spontaneous
  Country: CA (occurrence: None)
  Receive Date: 20211008
  Receipt Date: 20211117
  Transmission Date: 20220303
  Serious: Yes (Other)
  Sender: FDA-Public Use
  Company Number: CA-PFIZER INC-202101145767

PATIENT
  Age: 67 Year
  Sex: Male
  Weight: 76.6 kg

DRUGS (2)
  1. METHOTREXATE [Suspect]
     Active Substance: METHOTREXATE
     Indication: Crohn^s disease
     Route: 065
  2. METHOTREXATE [Suspect]
     Active Substance: METHOTREXATE
     Indication: Ankylosing spondylitis
     Route: 065

REACTIONS (8)
  - Treatment failure [Unknown]
  - Product use in unapproved indication [Unknown]
  - Faeces soft [Unknown]
  - Abdominal pain [Unknown]
  - Uveitis [Unknown]
  - Arthralgia [Unknown]
  - Aphthous ulcer [Unknown]
  - Condition aggravated [Not Recovered/Not Resolved]

NARRATIVE: CASE EVENT DATE: 20210929
